FAERS Safety Report 6941316-4 (Version None)
Quarter: 2010Q3

REPORT INFORMATION
  Report Type: 
  Country: None (occurrence: None)
  Receive Date: 20100825
  Receipt Date: 20100715
  Transmission Date: 20110219
  Serious: Yes (Hospitalization)
  Sender: FDA-Public Use
  Company Number: ES-CEPHALON-2010003602

PATIENT
  Sex: Male

DRUGS (4)
  1. TREANDA [Suspect]
     Indication: EXTRANODAL MARGINAL ZONE B-CELL LYMPHOMA (MALT TYPE)
     Route: 041
     Dates: start: 20100527, end: 20100811
  2. TREANDA [Suspect]
     Route: 041
     Dates: start: 20100429
  3. RITUXIMAB [Suspect]
     Indication: EXTRANODAL MARGINAL ZONE B-CELL LYMPHOMA (MALT TYPE)
     Route: 042
     Dates: start: 20100527, end: 20100811
  4. RITUXIMAB [Suspect]
     Route: 042
     Dates: start: 20100429

REACTIONS (2)
  - BACK PAIN [None]
  - CYTOMEGALOVIRUS INFECTION [None]
